FAERS Safety Report 12552629 (Version 2)
Quarter: 2016Q3

REPORT INFORMATION
  Report Type: Spontaneous
  Country: JP (occurrence: JP)
  Receive Date: 20160713
  Receipt Date: 20160713
  Transmission Date: 20161109
  Serious: Yes (Death, Other)
  Sender: FDA-Public Use
  Company Number: JP-CIPLA LTD.-2014JP00372

PATIENT

DRUGS (8)
  1. TEMOCAPRIL [Suspect]
     Active Substance: TEMOCAPRIL
     Indication: HYPERTENSION
     Dosage: 2 MG, DAILY
     Route: 065
  2. AMLODIPINE [Suspect]
     Active Substance: AMLODIPINE BESYLATE
     Indication: HYPERTENSION
     Dosage: 2.5 MG, DAILY, STARTED ON DAY 15
     Route: 065
  3. AMLODIPINE [Suspect]
     Active Substance: AMLODIPINE BESYLATE
     Dosage: 5 MG, ON DAY 21
     Route: 065
  4. PAZOPANIB [Suspect]
     Active Substance: PAZOPANIB
     Indication: CLEAR CELL RENAL CELL CARCINOMA
     Dosage: 400 MG, DAILY
     Route: 065
  5. SUNITINIB [Suspect]
     Active Substance: SUNITINIB
     Dosage: 37.5 MG, QD
     Route: 065
  6. LAPATINIB [Suspect]
     Active Substance: LAPATINIB
     Indication: CLEAR CELL RENAL CELL CARCINOMA
     Dosage: 1000 MG, DAILY
     Route: 065
  7. INTERFERON ALFA-2B [Suspect]
     Active Substance: INTERFERON ALFA-2B
     Indication: METASTASES TO LYMPH NODES
     Dosage: UNK
     Route: 030
  8. SUNITINIB [Suspect]
     Active Substance: SUNITINIB
     Indication: CLEAR CELL RENAL CELL CARCINOMA
     Dosage: 50 MG, DAILY
     Route: 065

REACTIONS (9)
  - Altered state of consciousness [Unknown]
  - Pigmentation disorder [Unknown]
  - Proteinuria [Unknown]
  - Thrombocytopenia [Unknown]
  - Stomatitis [Unknown]
  - Thyroid disorder [Unknown]
  - Aortic dissection [Fatal]
  - Disease progression [Unknown]
  - Hemiplegia [Unknown]
